FAERS Safety Report 9398651 (Version 1)
Quarter: 2013Q3

REPORT INFORMATION
  Report Type: Spontaneous
  Country: BR (occurrence: BR)
  Receive Date: 20130712
  Receipt Date: 20130712
  Transmission Date: 20140515
  Serious: Yes (Hospitalization, Other)
  Sender: FDA-Public Use
  Company Number: BR-PFIZER INC-2013203611

PATIENT
  Age: 75 Year
  Sex: Female

DRUGS (1)
  1. FRONTAL [Suspect]
     Dosage: 1 TABLET OF 0.5 MG, 1X/DAY
     Dates: start: 201106

REACTIONS (3)
  - Blood sodium decreased [Recovered/Resolved]
  - Blood sodium increased [Unknown]
  - Malaise [Not Recovered/Not Resolved]
